FAERS Safety Report 7483670-3 (Version None)
Quarter: 2011Q2

REPORT INFORMATION
  Report Type: 
  Country: None (occurrence: None)
  Receive Date: 20110517
  Receipt Date: 20101208
  Transmission Date: 20111010
  Serious: Yes (Hospitalization)
  Sender: FDA-Public Use
  Company Number: US-BAYER-201018584NA

PATIENT
  Age: 26 Year
  Sex: Female
  Weight: 61.224 kg

DRUGS (6)
  1. YASMIN [Suspect]
     Indication: CONTRACEPTION
     Dosage: UNK
     Route: 048
     Dates: start: 20051001, end: 20080101
  2. PROMETHAZINE [Concomitant]
     Indication: VOMITING
  3. YASMIN [Suspect]
     Indication: OVARIAN CYST
  4. CYCLOBENZAPRINE [Concomitant]
  5. AMOXICILLIN [Concomitant]
  6. PROMETHAZINE [Concomitant]
     Indication: NAUSEA
     Dosage: 25 MG, PRN

REACTIONS (5)
  - PAIN [None]
  - CHOLELITHIASIS [None]
  - CHOLECYSTITIS CHRONIC [None]
  - CHOLESTEROSIS [None]
  - GALLBLADDER DISORDER [None]
